FAERS Safety Report 23983012 (Version 1)
Quarter: 2024Q2

REPORT INFORMATION
  Report Type: Spontaneous
  Country: CN (occurrence: CN)
  Receive Date: 20240617
  Receipt Date: 20240617
  Transmission Date: 20240716
  Serious: Yes (Hospitalization, Other)
  Sender: FDA-Public Use
  Company Number: CN-002147023-NVSC2024CN124170

PATIENT
  Age: 41 Year
  Sex: Female
  Weight: 70 kg

DRUGS (4)
  1. PRANOPROFEN [Suspect]
     Active Substance: PRANOPROFEN
     Indication: Iridocyclitis
     Dosage: 1 DRP, QID
     Route: 047
     Dates: start: 20240513, end: 20240528
  2. TOBRADEX [Suspect]
     Active Substance: DEXAMETHASONE\TOBRAMYCIN
     Indication: Iridocyclitis
     Dosage: 1 DRP, QID
     Route: 047
     Dates: start: 20240513, end: 20240528
  3. MANNITOL [Concomitant]
     Active Substance: MANNITOL
     Indication: Intraocular pressure increased
     Dosage: UNK
     Route: 065
     Dates: start: 20240513
  4. CARTEOLOL HYDROCHLORIDE [Concomitant]
     Active Substance: CARTEOLOL HYDROCHLORIDE
     Indication: Intraocular pressure increased
     Dosage: UNK
     Route: 065
     Dates: start: 20240513

REACTIONS (5)
  - Glaucoma [Unknown]
  - Keratitis [Recovering/Resolving]
  - Intraocular pressure test abnormal [Recovered/Resolved]
  - Eye pain [Recovered/Resolved]
  - Drug ineffective [Unknown]

NARRATIVE: CASE EVENT DATE: 20240528
